FAERS Safety Report 5614210-9 (Version None)
Quarter: 2008Q1

REPORT INFORMATION
  Report Type: 
  Country: None (occurrence: None)
  Receive Date: 20080205
  Receipt Date: 20080131
  Transmission Date: 20080703
  Serious: Yes (Other)
  Sender: FDA-Public Use
  Company Number: US-BRISTOL-MYERS SQUIBB COMPANY-13833157

PATIENT
  Age: 85 Year
  Sex: Female

DRUGS (8)
  1. ABATACEPT [Suspect]
     Indication: RHEUMATOID ARTHRITIS
     Route: 042
     Dates: start: 20040728
  2. ALTACE [Concomitant]
     Route: 048
  3. ASPIRIN [Concomitant]
     Route: 048
  4. NIFEDIPINE [Concomitant]
     Route: 048
  5. ACTONEL [Concomitant]
     Route: 048
  6. METHOTREXATE [Concomitant]
     Route: 048
  7. TOPROL-XL [Concomitant]
     Route: 048
  8. ATOPICLAIR [Concomitant]

REACTIONS (2)
  - BASAL CELL CARCINOMA [None]
  - BOWEN'S DISEASE [None]
